FAERS Safety Report 14653199 (Version 1)
Quarter: 2018Q1

REPORT INFORMATION
  Report Type: Spontaneous
  Country: US (occurrence: US)
  Receive Date: 20180316
  Receipt Date: 20180316
  Transmission Date: 20180509
  Serious: Yes (Hospitalization)
  Sender: FDA-Public Use
  Company Number: None

PATIENT
  Age: 18 Year
  Sex: Male

DRUGS (1)
  1. DOXYCYCLINE HYCLATE DR [Suspect]
     Active Substance: DOXYCYCLINE HYCLATE

REACTIONS (2)
  - Epistaxis [None]
  - Hepatic enzyme increased [None]

NARRATIVE: CASE EVENT DATE: 20180120
